FAERS Safety Report 6329745-3 (Version None)
Quarter: 2009Q3

REPORT INFORMATION
  Report Type: 
  Country: None (occurrence: None)
  Receive Date: 20090826
  Receipt Date: 20090817
  Transmission Date: 20100115
  Serious: Yes (Other)
  Sender: FDA-Public Use
  Company Number: GB-TEVA-206665ISR

PATIENT
  Age: 61 Year
  Sex: Male
  Weight: 95.25 kg

DRUGS (2)
  1. METFORMIN HCL [Suspect]
     Indication: DIABETES MELLITUS
     Route: 048
     Dates: start: 20080724, end: 20090609
  2. VILDAGLIPTIN [Suspect]
     Indication: DIABETES MELLITUS
     Route: 048
     Dates: start: 20080724, end: 20090609

REACTIONS (1)
  - LIVER FUNCTION TEST ABNORMAL [None]
